FAERS Safety Report 7625668-8 (Version None)
Quarter: 2011Q3

REPORT INFORMATION
  Report Type: 
  Country: None (occurrence: None)
  Receive Date: 20110713
  Receipt Date: 20110628
  Transmission Date: 20111222
  Serious: Yes (Death, Hospitalization, Other)
  Sender: FDA-Public Use
  Company Number: AUR-APL-2011-03859

PATIENT
  Age: 68 Year
  Sex: Male

DRUGS (2)
  1. AMITRIPTYLINE HCL [Suspect]
     Indication: PRODUCT USED FOR UNKNOWN INDICATION
     Dosage: ORAL
     Route: 048
     Dates: end: 20070101
  2. ZOLPIDEM [Suspect]
     Indication: PRODUCT USED FOR UNKNOWN INDICATION
     Dosage: ORAL
     Route: 048
     Dates: end: 20070101

REACTIONS (22)
  - TOXICITY TO VARIOUS AGENTS [None]
  - MYDRIASIS [None]
  - ASPARTATE AMINOTRANSFERASE INCREASED [None]
  - BLOOD GLUCOSE INCREASED [None]
  - INTENTIONAL DRUG MISUSE [None]
  - HYPOTENSION [None]
  - HYPERTENSIVE CARDIOMEGALY [None]
  - ARTERIOSCLEROSIS CORONARY ARTERY [None]
  - CARDIO-RESPIRATORY ARREST [None]
  - BRONCHOPNEUMONIA [None]
  - COMPLETED SUICIDE [None]
  - HEART RATE INCREASED [None]
  - BLOOD CHLORIDE INCREASED [None]
  - ACIDOSIS [None]
  - BRAIN OEDEMA [None]
  - BLOOD UREA INCREASED [None]
  - LOSS OF CONSCIOUSNESS [None]
  - BLOOD CREATININE INCREASED [None]
  - ALANINE AMINOTRANSFERASE INCREASED [None]
  - PCO2 DECREASED [None]
  - PO2 INCREASED [None]
  - VENTRICULAR FIBRILLATION [None]
